FAERS Safety Report 9501339 (Version 1)
Quarter: 2013Q1

REPORT INFORMATION
  Report Type: Spontaneous
  Country: US (occurrence: None)
  Receive Date: 20130225
  Receipt Date: 20130225
  Transmission Date: 20140127
  Serious: Yes (Hospitalization)
  Sender: FDA-Public Use
  Company Number: 2012-409

PATIENT
  Age: 59 Year
  Sex: Female

DRUGS (3)
  1. PRIALT (ZICONOTIDE) INTRATHECAL INFUSION [Suspect]
     Indication: PAIN
     Dosage: UNK MCG, ONCE/HOUR, INTRATHECAL
     Route: 037
  2. DILAUDID (HYDROMORPHONE HYDROCHLORIDE) INJECTION [Suspect]
     Indication: POST LAMINECTOMY SYNDROME
     Dosage: UNK MCG, ONCE/HOUR, INTRATHECAL
     Route: 037
  3. FENTANYL (FENTANYL CITRATE) INJECTION [Suspect]
     Indication: POST LAMINECTOMY SYNDROME
     Dosage: UNK MCG, ONCE/HOUR, INTRATHECAL
     Route: 037

REACTIONS (3)
  - Foaming at mouth [None]
  - Unresponsive to stimuli [None]
  - Overdose [None]
